FAERS Safety Report 7098939-4 (Version None)
Quarter: 2010Q4

REPORT INFORMATION
  Report Type: 
  Country: None (occurrence: None)
  Receive Date: 20101112
  Receipt Date: 20101108
  Transmission Date: 20110411
  Serious: Yes (Life-Threatening, Hospitalization)
  Sender: FDA-Public Use
  Company Number: FR-SANOFI-AVENTIS-2010SA067778

PATIENT
  Age: 86 Year
  Sex: Male

DRUGS (13)
  1. PLAVIX [Suspect]
     Indication: MYOCARDIAL INFARCTION
     Route: 048
     Dates: start: 20100301, end: 20100907
  2. TRIATEC [Concomitant]
     Dates: start: 20100301, end: 20100509
  3. TRIATEC [Concomitant]
     Route: 048
     Dates: start: 20100510, end: 20100723
  4. ADANCOR [Concomitant]
     Indication: MYOCARDIAL INFARCTION
     Dates: start: 20100301, end: 20100509
  5. ADANCOR [Concomitant]
     Route: 048
     Dates: start: 20100510
  6. KARDEGIC [Concomitant]
     Indication: MYOCARDIAL INFARCTION
     Route: 048
     Dates: start: 20100301
  7. LASIX [Concomitant]
     Indication: MYOCARDIAL INFARCTION
     Dates: start: 20100301, end: 20100509
  8. LASIX [Concomitant]
     Route: 048
     Dates: start: 20100510, end: 20100723
  9. CARDENSIEL [Concomitant]
     Indication: MYOCARDIAL INFARCTION
     Route: 048
     Dates: start: 20100301, end: 20100723
  10. AMLOR [Concomitant]
     Route: 048
     Dates: start: 20100510, end: 20100601
  11. ESOMEPRAZOLE [Concomitant]
     Route: 048
     Dates: start: 20100301, end: 20100610
  12. TAHOR [Concomitant]
     Route: 048
     Dates: start: 20100301, end: 20100509
  13. TAHOR [Concomitant]
     Route: 048
     Dates: start: 20100510, end: 20100610

REACTIONS (4)
  - DERMATITIS EXFOLIATIVE [None]
  - DRUG RASH WITH EOSINOPHILIA AND SYSTEMIC SYMPTOMS [None]
  - EOSINOPHILIA [None]
  - LIVER DISORDER [None]
